FAERS Safety Report 7375704-1 (Version None)
Quarter: 2011Q1

REPORT INFORMATION
  Report Type: 
  Country: None (occurrence: None)
  Receive Date: 20110325
  Receipt Date: 20110315
  Transmission Date: 20110831
  Serious: Yes (Other)
  Sender: FDA-Public Use
  Company Number: BR-PFIZER INC-2011057573

PATIENT
  Sex: Female

DRUGS (1)
  1. PRISTIQ [Suspect]
     Route: 048

REACTIONS (3)
  - MUCOSAL DRYNESS [None]
  - HAEMORRHOID OPERATION [None]
  - CONSTIPATION [None]
